FAERS Safety Report 19472303 (Version 2)
Quarter: 2021Q3

REPORT INFORMATION
  Report Type: Spontaneous
  Country: PL (occurrence: PL)
  Receive Date: 20210629
  Receipt Date: 20210705
  Transmission Date: 20211014
  Serious: Yes (Other)
  Sender: FDA-Public Use
  Company Number: PL-009507513-2106POL005860

PATIENT
  Sex: Male

DRUGS (1)
  1. PEMBROLIZUMAB. [Suspect]
     Active Substance: PEMBROLIZUMAB
     Indication: NON-SMALL CELL LUNG CANCER STAGE IV
     Dosage: UNK

REACTIONS (7)
  - Malignant neoplasm progression [Unknown]
  - Nasopharyngitis [Unknown]
  - Unevaluable event [Unknown]
  - Hyperhidrosis [Unknown]
  - Asthenia [Unknown]
  - Hypophysitis [Unknown]
  - Loss of consciousness [Unknown]
